FAERS Safety Report 8809361 (Version 4)
Quarter: 2012Q4

REPORT INFORMATION
  Report Type: 
  Country: CA (occurrence: CA)
  Receive Date: 20120926
  Receipt Date: 20121228
  Transmission Date: 20130627
  Serious: Yes (Other)
  Sender: FDA-Public Use
  Company Number: CA-CELGENEUS-028-21880-12092236

PATIENT
  Sex: Male
  Weight: 113 kg

DRUGS (7)
  1. REVLIMID [Suspect]
     Indication: MYELOMA
     Dosage: 25 Milligram
     Route: 048
     Dates: start: 200901
  2. REVLIMID [Suspect]
     Dosage: 15 Milligram
     Route: 048
     Dates: start: 201207
  3. DEXAMETHASONE [Concomitant]
     Indication: MYELOMA
     Dosage: 20 Milligram
     Route: 065
     Dates: start: 200911
  4. VELCADE [Concomitant]
     Indication: MYELOMA
     Route: 065
     Dates: start: 200908
  5. PAMIDRONATE [Concomitant]
     Indication: MYELOMA
     Dosage: 90 Milligram
     Route: 041
     Dates: start: 199606
  6. PANTOLOC [Concomitant]
     Indication: ESOPHAGITIS
     Dosage: 40 Milligram
     Route: 065
     Dates: start: 1997
  7. ASA [Concomitant]
     Indication: DVT PROPHYLAXIS
     Dosage: 81 Milligram
     Route: 065
     Dates: start: 200902

REACTIONS (6)
  - Squamous cell carcinoma of skin [Recovered/Resolved]
  - Squamous cell carcinoma of skin [Recovered/Resolved]
  - Squamous cell carcinoma of skin [Recovered/Resolved]
  - Actinic keratosis [Recovered/Resolved]
  - Actinic keratosis [Recovered/Resolved]
  - Actinic keratosis [Unknown]
